FAERS Safety Report 6264290-5 (Version None)
Quarter: 2009Q3

REPORT INFORMATION
  Report Type: 
  Country: None (occurrence: None)
  Receive Date: 20090710
  Receipt Date: 20090629
  Transmission Date: 20100115
  Serious: Yes (Hospitalization)
  Sender: FDA-Public Use
  Company Number: CH-ALEXION-A200900543

PATIENT

DRUGS (12)
  1. SOLIRIS [Suspect]
     Indication: PAROXYSMAL NOCTURNAL HAEMOGLOBINURIA
     Dosage: 600 MG
     Route: 042
     Dates: start: 20090623
  2. BELOC ZOK [Concomitant]
     Indication: HYPERTENSION
     Dosage: 50 MG, QD
     Route: 048
  3. VFEND [Concomitant]
     Indication: BRONCHOPULMONARY ASPERGILLOSIS
     Dosage: 200 MG, BID
     Route: 048
     Dates: start: 20090601
  4. AUGMENTIN '125' [Concomitant]
     Dosage: 1 G, BID
     Route: 048
     Dates: start: 20090621, end: 20090626
  5. TRANSIPEG                          /00754501/ [Concomitant]
     Indication: CONSTIPATION
     Dosage: UNK
     Route: 048
     Dates: end: 20090626
  6. FIGEN [Concomitant]
     Indication: CONSTIPATION
     Dosage: UNK
     Route: 048
     Dates: end: 20090626
  7. LAXOBERON [Concomitant]
     Indication: CONSTIPATION
     Dosage: UNK
     Route: 048
  8. VALTREX [Concomitant]
     Indication: PROPHYLAXIS
     Dosage: 500 MG, BID
     Route: 048
  9. BACTRIM [Concomitant]
     Indication: PROPHYLAXIS
     Dosage: 3QW
     Route: 048
  10. NEXIUM [Concomitant]
     Dosage: 40 MG, QD
     Route: 048
  11. PRADIF [Concomitant]
     Dosage: 40 MG, QD
     Route: 048
  12. MAGNESIUM SULFATE [Concomitant]
     Dosage: 1/D
     Route: 048

REACTIONS (2)
  - CYSTITIS [None]
  - PROSTATITIS [None]
